FAERS Safety Report 9128803 (Version 1)
Quarter: 2013Q1

REPORT INFORMATION
  Report Type: Spontaneous
  Country: US (occurrence: US)
  Receive Date: 20130228
  Receipt Date: 20130228
  Transmission Date: 20140127
  Serious: No
  Sender: FDA-Public Use
  Company Number: US-ASTRAZENECA-2013SE10900

PATIENT
  Age: 50 Year
  Sex: Female
  Weight: 76.2 kg

DRUGS (2)
  1. TOPROL XL [Suspect]
     Indication: BLOOD PRESSURE ABNORMAL
     Route: 048
     Dates: start: 2005
  2. CRESTOR [Suspect]
     Indication: BLOOD CHOLESTEROL ABNORMAL
     Route: 048
     Dates: start: 201211, end: 201212

REACTIONS (5)
  - Undifferentiated connective tissue disease [Unknown]
  - Lymphoedema [Not Recovered/Not Resolved]
  - Myalgia [Unknown]
  - Local swelling [Not Recovered/Not Resolved]
  - Hepatic enzyme increased [Unknown]
